FAERS Safety Report 5702805-3 (Version None)
Quarter: 2008Q2

REPORT INFORMATION
  Report Type: 
  Country: None (occurrence: None)
  Receive Date: 20080411
  Receipt Date: 20080401
  Transmission Date: 20081010
  Serious: Yes (Hospitalization)
  Sender: FDA-Public Use
  Company Number: US-ELI_LILLY_AND_COMPANY-US200801000406

PATIENT
  Sex: Female

DRUGS (14)
  1. BYETTA [Suspect]
     Dosage: 5 UG, 2/D
     Route: 058
     Dates: start: 20070501, end: 20070501
  2. BYETTA [Suspect]
     Dosage: 10 UG, 2/D
     Route: 058
     Dates: start: 20070501
  3. METFORMIN HCL [Concomitant]
     Indication: DIABETES MELLITUS
     Dosage: 1000 MG, 2/D
     Route: 048
     Dates: start: 20070101, end: 20071211
  4. METFORMIN HCL [Concomitant]
     Dates: start: 20071218
  5. GLYBURIDE [Concomitant]
     Indication: DIABETES MELLITUS
     Dosage: 5 MG, 2/D
     Route: 048
  6. CLONIDINE HCL [Concomitant]
     Indication: HYPERTENSION
     Dosage: 0.2 MG, 3/D
     Route: 048
  7. ENALAPRIL MALEATE [Concomitant]
     Indication: HYPERTENSION
     Dosage: 20 MG, 2/D
     Route: 048
  8. METOPROLOL TARTRATE [Concomitant]
     Indication: HYPERTENSION
     Dosage: 100 MG, 2/D
     Route: 048
  9. CADUET [Concomitant]
     Indication: HYPERTENSION
     Dosage: 1 D/F, 2/D
     Route: 048
  10. ASCORBIC ACID [Concomitant]
     Dosage: 500 MG, UNK
  11. LEVOTHYROXINE SODIUM [Concomitant]
     Dosage: 100 UG, DAILY (1/D)
     Route: 048
  12. MULTI-VITAMIN [Concomitant]
     Dosage: UNK D/F, DAILY (1/D)
     Route: 048
  13. ASPIRIN [Concomitant]
     Dosage: 81 MG, DAILY (1/D)
     Route: 048
  14. TIMOLOL MALEATE [Concomitant]
     Dosage: 0.5 %, UNK

REACTIONS (5)
  - ABSCESS INTESTINAL [None]
  - ANOREXIA [None]
  - BLOOD GLUCOSE DECREASED [None]
  - BLOOD GLUCOSE INCREASED [None]
  - DIVERTICULITIS [None]
